FAERS Safety Report 18706230 (Version 1)
Quarter: 2021Q1

REPORT INFORMATION
  Report Type: Report from Study
  Country: IT (occurrence: IT)
  Receive Date: 20210106
  Receipt Date: 20210106
  Transmission Date: 20210419
  Serious: Yes (Life-Threatening)
  Sender: FDA-Public Use
  Company Number: IT-TEVA-2020-IT-1865354

PATIENT
  Age: 66 Year
  Sex: Female

DRUGS (6)
  1. PROMAZINE [Suspect]
     Active Substance: PROMAZINE
     Indication: INTENTIONAL SELF-INJURY
     Route: 048
     Dates: start: 20200923, end: 20200923
  2. TRITTICO [Suspect]
     Active Substance: TRAZODONE HYDROCHLORIDE
     Indication: INTENTIONAL SELF-INJURY
     Route: 048
     Dates: start: 20200923, end: 20200923
  3. TALOFEN [Suspect]
     Active Substance: PROMAZINE HYDROCHLORIDE
     Indication: INTENTIONAL SELF-INJURY
     Route: 048
     Dates: start: 20200923, end: 20200923
  4. LITIO CARBONATO [Suspect]
     Active Substance: LITHIUM CARBONATE
     Indication: INTENTIONAL SELF-INJURY
     Route: 048
     Dates: start: 20200923, end: 20200923
  5. SERTRALINE [Suspect]
     Active Substance: SERTRALINE HYDROCHLORIDE
     Indication: INTENTIONAL SELF-INJURY
     Route: 048
     Dates: start: 20200923, end: 20200923
  6. MIRTAZAPINE. [Suspect]
     Active Substance: MIRTAZAPINE
     Indication: INTENTIONAL SELF-INJURY
     Route: 048
     Dates: start: 20200923, end: 20200923

REACTIONS (2)
  - Drug abuse [Unknown]
  - Coma [Unknown]

NARRATIVE: CASE EVENT DATE: 20200923
